FAERS Safety Report 6969507-7 (Version None)
Quarter: 2010Q3

REPORT INFORMATION
  Report Type: 
  Country: None (occurrence: None)
  Receive Date: 20100907
  Receipt Date: 20100907
  Transmission Date: 20110219
  Serious: No
  Sender: FDA-Public Use
  Company Number: None

PATIENT
  Age: 35 Year
  Sex: Female
  Weight: 56.6996 kg

DRUGS (1)
  1. OXYCONTIN [Suspect]
     Indication: INTERVERTEBRAL DISC DEGENERATION
     Dosage: 2 TABLETS EVERY 12 HRS PO
     Route: 048
     Dates: start: 20100902, end: 20100903

REACTIONS (7)
  - ABDOMINAL PAIN UPPER [None]
  - DIZZINESS [None]
  - HEADACHE [None]
  - HEART RATE INCREASED [None]
  - MALAISE [None]
  - PRODUCT SUBSTITUTION ISSUE [None]
  - VOMITING [None]
